FAERS Safety Report 4955315-5 (Version None)
Quarter: 2006Q1

REPORT INFORMATION
  Report Type: 
  Country: None (occurrence: None)
  Receive Date: 20060328
  Receipt Date: 20060317
  Transmission Date: 20060701
  Serious: Yes (Hospitalization)
  Sender: FDA-Public Use
  Company Number: PHRM2006FR01093

PATIENT
  Age: 50 Year
  Sex: Male
  Weight: 61 kg

DRUGS (9)
  1. DAFLON 500 [Concomitant]
     Route: 048
  2. MOTILIUM [Concomitant]
     Dosage: 30 MG/DAY
     Route: 048
  3. EQUANIL [Concomitant]
     Dosage: 750 MG/DAY
     Route: 048
  4. VASTAREL [Concomitant]
     Dosage: 60 MG/DAY
     Route: 048
  5. SERESTA [Concomitant]
     Dosage: 100 MG/DAY
     Route: 048
  6. EUPHYTOSE [Concomitant]
     Dosage: 3 DF/DAY
     Route: 048
  7. SOLIAN [Suspect]
     Dosage: 200 MG, BID
     Route: 048
  8. COTAREG [Suspect]
     Dosage: 1 DF, QD
     Route: 048
     Dates: end: 20051228
  9. VITAMIN B1 (+B6) [Concomitant]

REACTIONS (11)
  - ANOREXIA [None]
  - ASTHENIA [None]
  - BALANCE DISORDER [None]
  - BLOOD CREATININE INCREASED [None]
  - BLOOD PRESSURE DECREASED [None]
  - BLOOD UREA INCREASED [None]
  - FALL [None]
  - GENERAL PHYSICAL HEALTH DETERIORATION [None]
  - HYPOTENSION [None]
  - RENAL FAILURE [None]
  - WOUND [None]
